FAERS Safety Report 17482113 (Version 5)
Quarter: 2020Q2

REPORT INFORMATION
  Report Type: Spontaneous
  Country: SN (occurrence: SN)
  Receive Date: 20200302
  Receipt Date: 20200528
  Transmission Date: 20200713
  Serious: Yes (Other)
  Sender: FDA-Public Use
  Company Number: NVSC2020SN051071

PATIENT
  Age: 35 Year
  Sex: Female

DRUGS (1)
  1. CURAM [Suspect]
     Active Substance: AMOXICILLIN\CLAVULANATE POTASSIUM
     Indication: PNEUMONITIS
     Dosage: 1 DF, TID
     Route: 048
     Dates: start: 20200205, end: 20200207

REACTIONS (6)
  - Condition aggravated [Not Recovered/Not Resolved]
  - Product size issue [Unknown]
  - Normal newborn [Unknown]
  - Pneumonitis [Not Recovered/Not Resolved]
  - Psychological trauma [Not Recovered/Not Resolved]
  - Maternal exposure during pregnancy [Not Recovered/Not Resolved]

NARRATIVE: CASE EVENT DATE: 20200205
